FAERS Safety Report 8328790-6 (Version None)
Quarter: 2012Q2

REPORT INFORMATION
  Report Type: 
  Country: None (occurrence: None)
  Receive Date: 20120502
  Receipt Date: 20120424
  Transmission Date: 20120825
  Serious: Yes (Other)
  Sender: FDA-Public Use
  Company Number: US-ELI_LILLY_AND_COMPANY-US201204009079

PATIENT
  Sex: Male

DRUGS (10)
  1. CLONIDINE [Concomitant]
  2. SIMVASTATIN [Concomitant]
  3. FISH OIL [Concomitant]
  4. NIASPAN [Concomitant]
  5. ZETIA [Concomitant]
  6. EFFIENT [Suspect]
     Indication: STENT PLACEMENT
     Dosage: 10 MG, UNKNOWN
     Route: 065
     Dates: start: 20110801, end: 20110901
  7. ASPIRIN [Concomitant]
  8. ZEGERID [Concomitant]
  9. CARVEDILOL [Concomitant]
  10. AMLODIPINE [Concomitant]

REACTIONS (1)
  - THROMBOSIS IN DEVICE [None]
